FAERS Safety Report 9425976 (Version 1)
Quarter: 2013Q3

REPORT INFORMATION
  Report Type: Spontaneous
  Country: BE (occurrence: BE)
  Receive Date: 20130729
  Receipt Date: 20130729
  Transmission Date: 20140515
  Serious: Yes (Hospitalization, Other)
  Sender: FDA-Public Use
  Company Number: BE-JNJFOC-20130711968

PATIENT
  Age: 12 Year
  Sex: Male

DRUGS (2)
  1. SINUTAB II 500/30 [Suspect]
     Indication: SINUSITIS
     Dosage: 500 MG/ 30 MG
     Route: 048
     Dates: start: 201305
  2. DAFALGAN [Concomitant]
     Route: 048

REACTIONS (2)
  - Amnesia [Recovered/Resolved]
  - Hallucination [Recovered/Resolved]
